FAERS Safety Report 8935486 (Version 1)
Quarter: 2012Q4

REPORT INFORMATION
  Report Type: Spontaneous
  Country: US (occurrence: None)
  Receive Date: 20121128
  Receipt Date: 20121128
  Transmission Date: 20130627
  Serious: Yes (Hospitalization)
  Sender: FDA-Public Use
  Company Number: None

PATIENT
  Age: 49 Year
  Sex: Female
  Weight: 73 kg

DRUGS (10)
  1. LITHIUM [Suspect]
     Indication: BIPOLAR DISORDER
     Dosage: PO
     Route: 048
  2. TOPAMAX [Concomitant]
  3. ZOLOFT [Concomitant]
  4. PROPANOLOL [Concomitant]
  5. LYRICA [Concomitant]
  6. PROTONIX [Concomitant]
  7. INSULIN [Concomitant]
  8. CELEBREX [Concomitant]
  9. SOMA [Concomitant]
  10. ASPIRIN [Concomitant]

REACTIONS (4)
  - Syncope [None]
  - Confusional state [None]
  - Aphasia [None]
  - Asthenia [None]
